FAERS Safety Report 7911337-3 (Version None)
Quarter: 2011Q4

REPORT INFORMATION
  Report Type: 
  Country: None (occurrence: None)
  Receive Date: 20111114
  Receipt Date: 20111102
  Transmission Date: 20120403
  Serious: Yes (Hospitalization)
  Sender: FDA-Public Use
  Company Number: US-ELI_LILLY_AND_COMPANY-US201111000753

PATIENT
  Sex: Male
  Weight: 136.5 kg

DRUGS (3)
  1. BYETTA [Suspect]
     Indication: TYPE 2 DIABETES MELLITUS
     Dosage: 5 UG, BID
     Route: 058
     Dates: start: 20050101
  2. METFORMIN [Concomitant]
     Indication: TYPE 2 DIABETES MELLITUS
     Dosage: UNK
     Route: 048
     Dates: start: 20050101, end: 20080901
  3. BYETTA [Suspect]
     Dosage: 10 UG, BID
     Route: 058
     Dates: end: 20080901

REACTIONS (11)
  - WEIGHT DECREASED [None]
  - FALL [None]
  - BILE DUCT OBSTRUCTION [None]
  - SPINAL FRACTURE [None]
  - PYREXIA [None]
  - DECREASED APPETITE [None]
  - PANCREATITIS [None]
  - CHOLELITHIASIS [None]
  - PELVIC FRACTURE [None]
  - FRACTURED SACRUM [None]
  - CHEST PAIN [None]
